FAERS Safety Report 5048057-1 (Version None)
Quarter: 2006Q3

REPORT INFORMATION
  Report Type: 
  Country: None (occurrence: None)
  Receive Date: 20060710
  Receipt Date: 20060710
  Transmission Date: 20061208
  Serious: Yes (Hospitalization)
  Sender: FDA-Public Use
  Company Number: None

PATIENT
  Sex: Female
  Weight: 100.6985 kg

DRUGS (13)
  1. GLEEVEC [Suspect]
     Indication: GLIOBLASTOMA MULTIFORME
     Dosage: 600MG  QD  PO
     Route: 048
     Dates: start: 20060624, end: 20060706
  2. HYDROXYUREA [Suspect]
     Indication: GLIOBLASTOMA MULTIFORME
     Dosage: 500MG  BID  PO
     Route: 048
     Dates: start: 20060624, end: 20060706
  3. NEXIUM [Concomitant]
  4. CRESTOR [Concomitant]
  5. XANAX [Concomitant]
  6. DECADRON [Concomitant]
  7. ELAVIL [Concomitant]
  8. NASONEX [Concomitant]
  9. OXYCODONE HCL [Concomitant]
  10. VALIUM [Concomitant]
  11. METFORMIN [Concomitant]
  12. PRANDIN [Concomitant]
  13. PROZAC [Concomitant]

REACTIONS (7)
  - ABDOMINAL DISCOMFORT [None]
  - ASTHENIA [None]
  - BLOOD GLUCOSE FLUCTUATION [None]
  - BURNING SENSATION [None]
  - DECREASED APPETITE [None]
  - GAIT DISTURBANCE [None]
  - NAUSEA [None]
